FAERS Safety Report 12188800 (Version 1)
Quarter: 2016Q1

REPORT INFORMATION
  Report Type: Other
  Country: US (occurrence: US)
  Receive Date: 20160317
  Receipt Date: 20160317
  Transmission Date: 20160526
  Serious: Yes (Hospitalization)
  Sender: FDA-Public Use
  Company Number: US-DEP_13774_2016

PATIENT
  Age: 62 Year
  Sex: Female
  Weight: 58 kg

DRUGS (5)
  1. UNSPECIFIED NASAL SPRAY FOR ALLERGIES [Concomitant]
     Indication: SEASONAL ALLERGY
     Dosage: DF
     Route: 045
  2. ZIPSOR [Suspect]
     Active Substance: DICLOFENAC POTASSIUM
     Indication: INFLAMMATION
     Dosage: DF
     Route: 048
     Dates: start: 20151109, end: 20151123
  3. PERCOCET [Concomitant]
     Active Substance: ACETAMINOPHEN\OXYCODONE HYDROCHLORIDE
     Indication: PAIN
     Dosage: DF, THREE TIMES A DAY, AS NEEDED
     Route: 048
  4. ZIPSOR [Suspect]
     Active Substance: DICLOFENAC POTASSIUM
     Indication: LIGAMENT INJURY
     Route: 048
     Dates: start: 20160210, end: 20160224
  5. ZIPSOR [Suspect]
     Active Substance: DICLOFENAC POTASSIUM
     Indication: PAIN IN EXTREMITY
     Dosage: DF
     Route: 048
     Dates: start: 20151109, end: 20151123

REACTIONS (5)
  - Vomiting [Recovered/Resolved]
  - Amnesia [Recovered/Resolved]
  - Haematochezia [Not Recovered/Not Resolved]
  - Confusional state [Recovered/Resolved]
  - Gastrointestinal haemorrhage [Recovered/Resolved]

NARRATIVE: CASE EVENT DATE: 20160224
